FAERS Safety Report 17244403 (Version 6)
Quarter: 2020Q4

REPORT INFORMATION
  Report Type: Spontaneous
  Country: US (occurrence: US)
  Receive Date: 20200107
  Receipt Date: 20201102
  Transmission Date: 20210113
  Serious: Yes (Other)
  Sender: FDA-Public Use
  Company Number: US-GILEAD-2019-0444946

PATIENT
  Age: 54 Year
  Sex: Female
  Weight: 104.31 kg

DRUGS (29)
  1. CALCIUM [Concomitant]
     Active Substance: CALCIUM
  2. HEPARIN [Concomitant]
     Active Substance: HEPARIN SODIUM
  3. FAMCICLOVIR. [Concomitant]
     Active Substance: FAMCICLOVIR
  4. ATRIPLA [Suspect]
     Active Substance: EFAVIRENZ\EMTRICITABINE\TENOFOVIR DISOPROXIL FUMARATE
     Indication: HIV INFECTION
     Dosage: UNK
     Route: 048
     Dates: start: 200506, end: 2018
  5. ACYCLOVIR [ACICLOVIR] [Concomitant]
     Active Substance: ACYCLOVIR
  6. AMPICILLIN [Concomitant]
     Active Substance: AMPICILLIN
  7. ASPIRIN (E.C.) [Concomitant]
     Active Substance: ASPIRIN
  8. LANSOPRAZOLE. [Concomitant]
     Active Substance: LANSOPRAZOLE
  9. PANTOPRAZOLE [Concomitant]
     Active Substance: PANTOPRAZOLE
  10. PENICILLIN B [Concomitant]
     Active Substance: PHENETICILLIN
  11. FLUCONAZOLE. [Concomitant]
     Active Substance: FLUCONAZOLE
  12. VITAMIN D PLUS [Concomitant]
  13. GENVOYA [Concomitant]
     Active Substance: COBICISTAT\ELVITEGRAVIR\EMTRICITABINE\TENOFOVIR ALAFENAMIDE FUMARATE
     Indication: PRODUCT USED FOR UNKNOWN INDICATION
     Route: 048
  14. PRAVASTATIN. [Concomitant]
     Active Substance: PRAVASTATIN
  15. ESTROGEN [Concomitant]
     Active Substance: ESTROGENS
  16. ALBUTEROL HFA [Concomitant]
     Active Substance: ALBUTEROL SULFATE
  17. AMOXICILLIN. [Concomitant]
     Active Substance: AMOXICILLIN
  18. FLUOCINONIDE. [Concomitant]
     Active Substance: FLUOCINONIDE
  19. LIDOCAINE. [Concomitant]
     Active Substance: LIDOCAINE
  20. BENZONATATE. [Concomitant]
     Active Substance: BENZONATATE
  21. BACTRIM [Concomitant]
     Active Substance: SULFAMETHOXAZOLE\TRIMETHOPRIM
  22. VANCOMYCIN [Concomitant]
     Active Substance: VANCOMYCIN
  23. HYDROXYZINE [Concomitant]
     Active Substance: HYDROXYZINE HYDROCHLORIDE
  24. ZANTAC [Concomitant]
     Active Substance: RANITIDINE HYDROCHLORIDE
  25. PROZAC [Concomitant]
     Active Substance: FLUOXETINE HYDROCHLORIDE
  26. CORTISONE [Concomitant]
     Active Substance: CORTISONE
  27. OMEPRAZOLE. [Concomitant]
     Active Substance: OMEPRAZOLE
  28. TETRACYCLINE [Concomitant]
     Active Substance: TETRACYCLINE
  29. NORTRIPTYLINE [Concomitant]
     Active Substance: NORTRIPTYLINE

REACTIONS (17)
  - Vitamin D deficiency [Not Recovered/Not Resolved]
  - Panic attack [Not Recovered/Not Resolved]
  - Spinal stenosis [Not Recovered/Not Resolved]
  - Tooth loss [Not Recovered/Not Resolved]
  - Economic problem [Not Recovered/Not Resolved]
  - Osteopenia [Recovered/Resolved]
  - Nightmare [Recovered/Resolved]
  - Bone density decreased [Unknown]
  - Anhedonia [Not Recovered/Not Resolved]
  - Intervertebral disc degeneration [Not Recovered/Not Resolved]
  - Anxiety [Not Recovered/Not Resolved]
  - Ankle fracture [Unknown]
  - Emotional distress [Not Recovered/Not Resolved]
  - Post-traumatic stress disorder [Recovered/Resolved]
  - Depression [Unknown]
  - Osteoporosis [Not Recovered/Not Resolved]
  - Pain [Not Recovered/Not Resolved]

NARRATIVE: CASE EVENT DATE: 2010
